FAERS Safety Report 4609568-3 (Version None)
Quarter: 2005Q1

REPORT INFORMATION
  Report Type: 
  Country: None (occurrence: None)
  Receive Date: 20050316
  Receipt Date: 20040812
  Transmission Date: 20050727
  Serious: Yes (Hospitalization, Disabling)
  Sender: FDA-Public Use
  Company Number: PHEH2004US08719

PATIENT
  Age: 37 Year
  Sex: Male

DRUGS (1)
  1. LAMISIL [Suspect]
     Route: 048

REACTIONS (11)
  - ANXIETY [None]
  - INJURY [None]
  - NON-CONSUMMATION [None]
  - OEDEMA [None]
  - PAIN [None]
  - PETECHIAE [None]
  - RASH [None]
  - SKIN LESION [None]
  - SKIN NECROSIS [None]
  - SKIN ULCER [None]
  - WOUND DEBRIDEMENT [None]
